FAERS Safety Report 23220994 (Version 1)
Quarter: 2023Q4

REPORT INFORMATION
  Report Type: Spontaneous
  Country: US (occurrence: US)
  Receive Date: 20231123
  Receipt Date: 20231123
  Transmission Date: 20240110
  Serious: Yes (Hospitalization, Other)
  Sender: FDA-Public Use
  Company Number: US-IPCA LABORATORIES LIMITED-IPC-2023-US-002038

PATIENT

DRUGS (2)
  1. METFORMIN [Suspect]
     Active Substance: METFORMIN HYDROCHLORIDE
     Indication: Type 2 diabetes mellitus
     Dosage: 1000 MILLIGRAM, BID
     Route: 065
  2. GLIPIZIDE [Concomitant]
     Active Substance: GLIPIZIDE
     Indication: Type 2 diabetes mellitus
     Dosage: UNK
     Route: 065

REACTIONS (3)
  - Lactic acidosis [Recovered/Resolved]
  - Fall [Unknown]
  - Dehydration [Unknown]
